FAERS Safety Report 18052689 (Version 4)
Quarter: 2020Q3

REPORT INFORMATION
  Report Type: Spontaneous
  Country: US (occurrence: US)
  Receive Date: 20200721
  Receipt Date: 20200811
  Transmission Date: 20201103
  Serious: No
  Sender: FDA-Public Use
  Company Number: NVSC2020US201404

PATIENT
  Sex: Female

DRUGS (2)
  1. REFRESH [Concomitant]
     Active Substance: UNSPECIFIED INGREDIENT
     Indication: PRODUCT USED FOR UNKNOWN INDICATION
     Route: 065
  2. XIIDRA [Suspect]
     Active Substance: LIFITEGRAST
     Indication: PRODUCT USED FOR UNKNOWN INDICATION
     Dosage: 5 %, BID
     Route: 047

REACTIONS (6)
  - Eye pain [Unknown]
  - Eye discharge [Unknown]
  - Hypoaesthesia [Unknown]
  - Instillation site pain [Unknown]
  - Eye infection [Unknown]
  - Condition aggravated [Unknown]
